FAERS Safety Report 18066177 (Version 1)
Quarter: 2020Q3

REPORT INFORMATION
  Report Type: Spontaneous
  Country: IT (occurrence: IT)
  Receive Date: 20200724
  Receipt Date: 20200724
  Transmission Date: 20201103
  Serious: Yes (Other)
  Sender: FDA-Public Use
  Company Number: IT-SA-2020SA191066

PATIENT

DRUGS (1)
  1. OMNIC [Suspect]
     Active Substance: TAMSULOSIN HYDROCHLORIDE
     Indication: URINARY HESITATION
     Dosage: 0.4 MG, QD
     Route: 048
     Dates: start: 20200121, end: 20200227

REACTIONS (2)
  - Erectile dysfunction [Not Recovered/Not Resolved]
  - Genital discolouration [Not Recovered/Not Resolved]

NARRATIVE: CASE EVENT DATE: 20200210
